FAERS Safety Report 9558924 (Version 1)
Quarter: 2013Q3

REPORT INFORMATION
  Report Type: Spontaneous
  Country: US (occurrence: US)
  Receive Date: 20130927
  Receipt Date: 20130927
  Transmission Date: 20140515
  Serious: Yes (Hospitalization, Other)
  Sender: FDA-Public Use
  Company Number: US-009507513-1309USA012477

PATIENT
  Sex: Female

DRUGS (1)
  1. INTRONA [Suspect]
     Indication: HEPATITIS C
     Dosage: UNK
     Dates: start: 20120401

REACTIONS (6)
  - Cardiac failure congestive [Unknown]
  - Viral load decreased [Unknown]
  - Fall [Unknown]
  - Fluid imbalance [Unknown]
  - Oral mucosal blistering [Unknown]
  - Oral pain [Unknown]
